FAERS Safety Report 4733372-9 (Version None)
Quarter: 2005Q3

REPORT INFORMATION
  Report Type: 
  Country: None (occurrence: None)
  Receive Date: 20050801
  Receipt Date: 20050801
  Transmission Date: 20060218
  Serious: Yes (Hospitalization)
  Sender: FDA-Public Use
  Company Number: None

PATIENT
  Age: 58 Year
  Sex: Male

DRUGS (4)
  1. IRBESARTAN [Suspect]
     Indication: HYPERTENSION
     Dosage: 300 MG QD
     Dates: start: 20010601
  2. ASPIRIN [Concomitant]
  3. ADALAT CC [Concomitant]
  4. BUPROPION [Concomitant]

REACTIONS (1)
  - RENAL FAILURE ACUTE [None]
